FAERS Safety Report 9777768 (Version 1)
Quarter: 2013Q4

REPORT INFORMATION
  Report Type: Spontaneous
  Country: US (occurrence: US)
  Receive Date: 20131223
  Receipt Date: 20131223
  Transmission Date: 20140711
  Serious: Yes (Other)
  Sender: FDA-Public Use
  Company Number: US-BIOGENIDEC-2013BI122148

PATIENT
  Sex: Female
  Weight: 47 kg

DRUGS (10)
  1. AVONEX [Suspect]
     Indication: MULTIPLE SCLEROSIS
     Route: 030
     Dates: start: 20000411
  2. ALPRAZOLAM [Concomitant]
  3. SIMVASTATIN [Concomitant]
  4. VAGIFEM [Concomitant]
  5. ZIOPTAN [Concomitant]
  6. NAPROXEN SODIUM [Concomitant]
  7. GABAPENTIN [Concomitant]
  8. ROPINIROLE HCL [Concomitant]
  9. MODAFINIL [Concomitant]
  10. BACLOFEN [Concomitant]

REACTIONS (5)
  - Breast cancer in situ [Unknown]
  - Scoliosis [Unknown]
  - Spondylitis [Unknown]
  - Kyphosis [Unknown]
  - Type V hyperlipidaemia [Unknown]
